FAERS Safety Report 8198824-0 (Version None)
Quarter: 2012Q1

REPORT INFORMATION
  Report Type: 
  Country: None (occurrence: None)
  Receive Date: 20120309
  Receipt Date: 20120216
  Transmission Date: 20120608
  Serious: Yes (Other)
  Sender: FDA-Public Use
  Company Number: US-AMGEN-USASP2011064207

PATIENT
  Age: 77 Year
  Sex: Female
  Weight: 103.86 kg

DRUGS (7)
  1. JANUMET [Concomitant]
     Dosage: UNK
     Dates: start: 20100323
  2. LUMIGAN [Concomitant]
  3. PROLIA [Suspect]
     Indication: OSTEOPOROSIS POSTMENOPAUSAL
     Dosage: 60 MG, Q6MO
     Route: 058
     Dates: start: 20111114, end: 20111114
  4. PRAVASTATIN [Concomitant]
     Dosage: UNK
     Dates: start: 20100625
  5. VITAMIN D [Concomitant]
  6. ASPIRIN [Concomitant]
  7. NITROFURANTOIN [Concomitant]

REACTIONS (4)
  - BACK PAIN [None]
  - GAIT DISTURBANCE [None]
  - OSTEOARTHRITIS [None]
  - SPINAL COLUMN STENOSIS [None]
